FAERS Safety Report 7978459-2 (Version None)
Quarter: 2011Q4

REPORT INFORMATION
  Report Type: 
  Country: None (occurrence: None)
  Receive Date: 20111214
  Receipt Date: 20111206
  Transmission Date: 20120403
  Serious: Yes (Other)
  Sender: FDA-Public Use
  Company Number: US-BAYER-2011-047425

PATIENT
  Age: 41 Year
  Sex: Female
  Weight: 77 kg

DRUGS (11)
  1. XANAX [Concomitant]
  2. NAPROXEN SODIUM AND PSEUDOEPHEDRINE HYDROCHLORIDE [Concomitant]
     Dosage: UNK
     Dates: start: 20060601, end: 20110201
  3. YASMIN [Suspect]
  4. DROSPIRENONE AND ETHINYL ESTRADIOL [Suspect]
  5. FLONASE [Concomitant]
  6. KEFLEX [Concomitant]
  7. SYNTHROID [Concomitant]
  8. ALPRAZOLAM [Concomitant]
     Dosage: UNK
     Dates: start: 20050101
  9. JANUMET [Concomitant]
     Dosage: UNK
     Dates: start: 20050101
  10. LEVOTHYROXINE SODIUM [Concomitant]
     Dosage: 100 ?G, UNK
  11. VICODIN [Concomitant]

REACTIONS (22)
  - CHOLECYSTITIS [None]
  - VOMITING [None]
  - NAUSEA [None]
  - OVARIAN CYST [None]
  - BILIARY DYSKINESIA [None]
  - CHOLECYSTITIS CHRONIC [None]
  - CHOLELITHIASIS [None]
  - EMOTIONAL DISTRESS [None]
  - WEIGHT DECREASED [None]
  - GALLBLADDER DISORDER [None]
  - ABDOMINAL PAIN UPPER [None]
  - PAIN [None]
  - ANXIETY [None]
  - MENORRHAGIA [None]
  - HEADACHE [None]
  - FEELING ABNORMAL [None]
  - MASS [None]
  - HYPOTHYROIDISM [None]
  - BLOOD GLUCOSE INCREASED [None]
  - DYSMENORRHOEA [None]
  - INJURY [None]
  - INCISION SITE PAIN [None]
